FAERS Safety Report 13500200 (Version 1)
Quarter: 2017Q2

REPORT INFORMATION
  Report Type: Spontaneous
  Country: US (occurrence: US)
  Receive Date: 20170501
  Receipt Date: 20170501
  Transmission Date: 20170830
  Serious: No
  Sender: FDA-Public Use
  Company Number: US-AKRIMAX-TIR-2017-0240

PATIENT
  Age: 65 Year
  Sex: Female
  Weight: 61.74 kg

DRUGS (7)
  1. TOPROL XL [Concomitant]
     Active Substance: METOPROLOL SUCCINATE
     Indication: PRODUCT USED FOR UNKNOWN INDICATION
     Dosage: 50MG DAILY
  2. TIROSINT [Suspect]
     Active Substance: LEVOTHYROXINE SODIUM
     Indication: THYROID DISORDER
     Dosage: ONE 125MCG CAPSULE AND ONE 13MCG CAPSULE DAILY
     Route: 048
     Dates: start: 201511
  3. TIROSINT [Suspect]
     Active Substance: LEVOTHYROXINE SODIUM
     Indication: THYROID DISORDER
     Dosage: ONE 125MCG CAPSULE AND ONE 13MCG CAPSULE DAILY
     Route: 048
     Dates: start: 201511
  4. SPIRONOLACTONE. [Concomitant]
     Active Substance: SPIRONOLACTONE
     Indication: PRODUCT USED FOR UNKNOWN INDICATION
     Dosage: TWO 100MG TABLETS DAILY
  5. METFORMIN [Concomitant]
     Active Substance: METFORMIN HYDROCHLORIDE
     Indication: PRODUCT USED FOR UNKNOWN INDICATION
     Dosage: 500MG TWICE DAILY
     Route: 048
  6. TIROSINT [Suspect]
     Active Substance: LEVOTHYROXINE SODIUM
     Dosage: 125MCG CAPSULE DAILY BUT SKIPS A DOSE ^EVERY THIRD DAY OR SO^
     Route: 048
  7. TIROSINT [Suspect]
     Active Substance: LEVOTHYROXINE SODIUM
     Route: 048

REACTIONS (9)
  - Weight decreased [Unknown]
  - Hyperhidrosis [Unknown]
  - Malaise [Unknown]
  - Palpitations [Unknown]
  - Insomnia [Unknown]
  - Heart rate increased [Unknown]
  - Feeling hot [Unknown]
  - Inappropriate schedule of drug administration [Unknown]
  - Alopecia [Unknown]

NARRATIVE: CASE EVENT DATE: 201511
